FAERS Safety Report 6928158-0 (Version None)
Quarter: 2010Q3

REPORT INFORMATION
  Report Type: 
  Country: None (occurrence: None)
  Receive Date: 20100817
  Receipt Date: 20100812
  Transmission Date: 20110219
  Serious: Yes (Death, Other)
  Sender: FDA-Public Use
  Company Number: CH-ASTRAZENECA-2010SE38027

PATIENT
  Age: 72 Year
  Sex: Male

DRUGS (13)
  1. NEXIUM [Suspect]
     Route: 041
  2. SINTROM [Suspect]
     Route: 048
     Dates: start: 20081205, end: 20090107
  3. DEPAKENE [Suspect]
     Route: 048
  4. PLAVIX [Suspect]
     Route: 048
     Dates: start: 20081101
  5. CIPROFLOXACIN [Suspect]
     Route: 048
     Dates: start: 20081215, end: 20081217
  6. IMIPENEM AND CILASTATIN [Suspect]
     Route: 041
     Dates: start: 20081218
  7. SORTIS [Concomitant]
     Route: 048
  8. FLUANXOL [Concomitant]
     Route: 048
  9. GLUCOPHAGE [Concomitant]
     Route: 048
  10. ARICEPT [Concomitant]
     Route: 048
  11. ATACAND [Concomitant]
     Route: 048
  12. CREON [Concomitant]
     Route: 048
  13. DIGOXIN [Concomitant]
     Route: 048

REACTIONS (3)
  - ENTEROCOLITIS HAEMORRHAGIC [None]
  - INTERNATIONAL NORMALISED RATIO INCREASED [None]
  - PETECHIAE [None]
